FAERS Safety Report 15783483 (Version 1)
Quarter: 2019Q1

REPORT INFORMATION
  Report Type: Spontaneous
  Country: US (occurrence: US)
  Receive Date: 20190102
  Receipt Date: 20190102
  Transmission Date: 20190417
  Serious: No
  Sender: FDA-Public Use
  Company Number: US-PRAGMA PHARMACEUTICALS, LLC-2018PRG00222

PATIENT
  Age: 88 Year
  Sex: Female
  Weight: 29.03 kg

DRUGS (18)
  1. FLUZONE [Concomitant]
     Active Substance: INFLUENZA A VIRUS A/CALIFORNIA/7/2009 X-179A (H1N1) ANTIGEN (FORMALDEHYDE INACTIVATED)\INFLUENZA A VIRUS A/VICTORIA/210/2009 X-187 (H3N2) ANTIGEN (FORMALDEHYDE INACTIVATED)\INFLUENZA B VIRUS B/BRISBANE/60/2008 ANTIGEN (FORMALDEHYDE INACTIVATED)
     Dosage: 180 ?G, 1X/DAY
     Route: 048
     Dates: start: 2017, end: 2018
  2. DECADRON [Suspect]
     Active Substance: DEXAMETHASONE
     Dosage: UNK
     Route: 048
     Dates: start: 20180326
  3. REVLIMID [Suspect]
     Active Substance: LENALIDOMIDE
     Indication: PLASMA CELL MYELOMA
     Dosage: 15 MG, 1X/DAY
     Route: 048
     Dates: start: 20170601, end: 2017
  4. REVLIMID [Suspect]
     Active Substance: LENALIDOMIDE
     Dosage: 10 MG, 1X/DAY X21 DAYS (IN 28 DAYS)
     Route: 048
     Dates: start: 20171009, end: 201710
  5. REVLIMID [Suspect]
     Active Substance: LENALIDOMIDE
     Dosage: 5 MG, 1X/DAY
     Route: 048
     Dates: start: 20180101, end: 2018
  6. REVLIMID [Suspect]
     Active Substance: LENALIDOMIDE
     Dosage: 5 MG, 1X/DAY
     Route: 048
     Dates: start: 20180201, end: 2018
  7. CALCIUM CARBONATE W/ VITAMIN D3 [Concomitant]
     Dosage: 1 DOSAGE UNITS, 1X/DAY
     Route: 048
  8. REVLIMID [Suspect]
     Active Substance: LENALIDOMIDE
     Dosage: 5 MG, 1X/DAY X21 DAYS (OUT OF 28 DAYS)
     Route: 048
     Dates: start: 20171106, end: 2017
  9. REVLIMID [Suspect]
     Active Substance: LENALIDOMIDE
     Dosage: 5 MG, 1X/DAY X21DAYS (OUT OF 28 DAYS)
     Route: 048
     Dates: start: 20180305, end: 20180323
  10. PRINIVIL [Concomitant]
     Active Substance: LISINOPRIL
     Route: 048
  11. ZESTRIL [Concomitant]
     Active Substance: LISINOPRIL
     Route: 048
  12. MULTIVITAMIN W/MINERALS [Concomitant]
     Active Substance: MINERALS\VITAMINS
     Dosage: 1 DOSAGE UNITS, 1X/DAY
     Route: 048
  13. DECADRON [Suspect]
     Active Substance: DEXAMETHASONE
     Dosage: UNK
     Route: 048
  14. DECADRON [Suspect]
     Active Substance: DEXAMETHASONE
     Indication: PLASMA CELL MYELOMA
     Dosage: 20 MG, 1X/WEEK
     Route: 048
     Dates: start: 20170601, end: 20170808
  15. REVLIMID [Suspect]
     Active Substance: LENALIDOMIDE
     Dosage: 5 MG, 1X/DAY X21 DAYS (OUT OF 28 DAYS)
     Route: 048
     Dates: start: 20180405, end: 20180414
  16. DECADRON [Suspect]
     Active Substance: DEXAMETHASONE
     Dosage: 20 MG, 1X/WEEK
     Route: 048
     Dates: start: 20171009, end: 201710
  17. REVLIMID [Suspect]
     Active Substance: LENALIDOMIDE
     Dosage: 5 MG, 1X/DAY
     Route: 048
     Dates: start: 20171204
  18. ASPIRIN EC [Concomitant]
     Active Substance: ASPIRIN
     Route: 048

REACTIONS (9)
  - Drug intolerance [Unknown]
  - Chest discomfort [Unknown]
  - Fatigue [Not Recovered/Not Resolved]
  - Anxiety [Not Recovered/Not Resolved]
  - Vestibular neuronitis [Unknown]
  - Dyspepsia [Unknown]
  - Chills [Not Recovered/Not Resolved]
  - Malaise [Not Recovered/Not Resolved]
  - Unevaluable event [Unknown]

NARRATIVE: CASE EVENT DATE: 2017
